FAERS Safety Report 17757990 (Version 1)
Quarter: 2020Q2

REPORT INFORMATION
  Report Type: Report from Study
  Country: GB (occurrence: GB)
  Receive Date: 20200507
  Receipt Date: 20200507
  Transmission Date: 20200714
  Serious: Yes (Other)
  Sender: FDA-Public Use
  Company Number: NVSC2020GB123727

PATIENT
  Sex: Female

DRUGS (1)
  1. HYRIMOZ [Suspect]
     Active Substance: ADALIMUMAB-ADAZ
     Indication: RHEUMATOID ARTHRITIS
     Dosage: 40 MG, FORTNIGHTLY
     Route: 065
     Dates: start: 20190620

REACTIONS (3)
  - Lower respiratory tract infection [Unknown]
  - Localised infection [Unknown]
  - Product dose omission [Unknown]
